FAERS Safety Report 21624295 (Version 2)
Quarter: 2022Q4

REPORT INFORMATION
  Report Type: Spontaneous
  Country: BR (occurrence: BR)
  Receive Date: 20221121
  Receipt Date: 20221211
  Transmission Date: 20230112
  Serious: Yes (Hospitalization, Other)
  Sender: FDA-Public Use
  Company Number: BR-JNJFOC-20221125745

PATIENT
  Age: 11 Year
  Sex: Male
  Weight: 43 kg

DRUGS (4)
  1. RISPERDAL [Suspect]
     Active Substance: RISPERIDONE
     Indication: Product used for unknown indication
     Dosage: 2 FOR 2 TIMES A DAY
     Route: 048
     Dates: start: 20211027, end: 20211216
  2. TIGECYCLINE [Suspect]
     Active Substance: TIGECYCLINE
     Indication: Stenotrophomonas infection
     Route: 042
     Dates: start: 20211226, end: 20220105
  3. NEXIUM I.V. [Suspect]
     Active Substance: ESOMEPRAZOLE SODIUM
     Indication: Product used for unknown indication
     Route: 042
     Dates: start: 20211222, end: 20220203
  4. KEPPRA [Suspect]
     Active Substance: LEVETIRACETAM
     Indication: Product used for unknown indication
     Route: 048

REACTIONS (4)
  - Therapeutic procedure [Unknown]
  - Pneumonia [Unknown]
  - Lipase increased [Recovered/Resolved]
  - Amylase increased [Recovered/Resolved]

NARRATIVE: CASE EVENT DATE: 20211027
